FAERS Safety Report 7163230-4 (Version None)
Quarter: 2010Q4

REPORT INFORMATION
  Report Type: 
  Country: None (occurrence: None)
  Receive Date: 20101210
  Receipt Date: 20101210
  Transmission Date: 20110411
  Serious: Yes (Other)
  Sender: FDA-Public Use
  Company Number: None

PATIENT
  Age: 52 Year
  Sex: Male

DRUGS (4)
  1. GAMMA GLOBULIN INJECTION NOT PROVIDED [Suspect]
     Indication: HEPATITIS C
  2. COMBO INTERFERON+RIBAVI [Suspect]
  3. UNSPECIFIED ANTIDEPRESSANT [Concomitant]
  4. COMBINATION PEGYLATED INTERFERON AND RIBAVIRIN [Concomitant]

REACTIONS (8)
  - ANXIETY [None]
  - FEELING ABNORMAL [None]
  - FEELING COLD [None]
  - HYPERACUSIS [None]
  - MYALGIA [None]
  - PALLOR [None]
  - PYREXIA [None]
  - SUBCUTANEOUS ABSCESS [None]
